FAERS Safety Report 6239691-1 (Version None)
Quarter: 2009Q2

REPORT INFORMATION
  Report Type: 
  Country: None (occurrence: None)
  Receive Date: 20090619
  Receipt Date: 20090604
  Transmission Date: 20091009
  Serious: Yes (Hospitalization)
  Sender: FDA-Public Use
  Company Number: DSU-2009-00731

PATIENT
  Age: 61 Year
  Sex: Male
  Weight: 90 kg

DRUGS (13)
  1. CHOLESTAGE   (COLESEVELAM HYDROCHLORIDE) [Suspect]
     Indication: HYPERCHOLESTEROLAEMIA
     Dosage: 3750 MG (3750 MG, QD), PER ORAL
     Route: 048
     Dates: start: 20080416, end: 20080708
  2. EZETIMIBE [Concomitant]
  3. ACETYLSALICYLIC ACID SRT [Concomitant]
  4. ROSUVASTATIN (ROSUVASTATIN) (ROSUVASTATIN) [Concomitant]
  5. OMEPRAZOLE [Concomitant]
  6. ACETYLSALICYLIC ACID SRT [Concomitant]
  7. LISINOPRIL [Concomitant]
  8. DOXYCYCLINE (DOXYCYCLONE) (DOXYCYCLINE) [Concomitant]
  9. AMLODIPINE [Concomitant]
  10. METOPROLOL SUCCINATE [Concomitant]
  11. VIDISIC CARBOGEL (CARBOMER) (CACHET) (CARBOMER) [Concomitant]
  12. ASCAL (CARBASALATE CALCIUM) (CARBASALATE CALCIUM) [Concomitant]
  13. COZAAR [Concomitant]

REACTIONS (10)
  - BLOOD CALCIUM DECREASED [None]
  - BLOOD CHOLESTEROL INCREASED [None]
  - BLOOD POTASSIUM DECREASED [None]
  - BLOOD SODIUM DECREASED [None]
  - BLOOD TRIGLYCERIDES INCREASED [None]
  - HAEMATOCRIT DECREASED [None]
  - HAEMOGLOBIN DECREASED [None]
  - HIGH DENSITY LIPOPROTEIN DECREASED [None]
  - LOW DENSITY LIPOPROTEIN INCREASED [None]
  - THYROID CANCER [None]
